FAERS Safety Report 8612848-8 (Version None)
Quarter: 2012Q3

REPORT INFORMATION
  Report Type: 
  Country: None (occurrence: None)
  Receive Date: 20120822
  Receipt Date: 20111117
  Transmission Date: 20120928
  Serious: No
  Sender: FDA-Public Use
  Company Number: US-ASTRAZENECA-2011SE29155

PATIENT
  Age: 59 Year
  Sex: Female

DRUGS (3)
  1. NEXIUM [Suspect]
     Route: 048
  2. ALLEGRA [Concomitant]
  3. SYMBICORT [Suspect]
     Route: 055

REACTIONS (2)
  - SINUS DISORDER [None]
  - NASOPHARYNGITIS [None]
